FAERS Safety Report 24153604 (Version 1)
Quarter: 2024Q3

REPORT INFORMATION
  Report Type: Spontaneous
  Country: US (occurrence: US)
  Receive Date: 20240730
  Receipt Date: 20240730
  Transmission Date: 20241017
  Serious: Yes (Other)
  Sender: HIKMA
  Company Number: US-HIKMA PHARMACEUTICALS-US-H14001-24-06728

PATIENT
  Age: 13 Year
  Sex: Male
  Weight: 47.4 kg

DRUGS (6)
  1. BRENTUXIMAB VEDOTIN [Suspect]
     Active Substance: BRENTUXIMAB VEDOTIN
     Indication: Hodgkin^s disease
     Dosage: 1.8 MILLIGRAM/KILOGRAM, OVER 30 MINUTES ON DAY 1
     Route: 042
     Dates: start: 20190130
  2. CYCLOPHOSPHAMIDE [Suspect]
     Active Substance: CYCLOPHOSPHAMIDE
     Indication: Hodgkin^s disease
     Dosage: 600 MILLIGRAM/SQ. METER OVER 30-60 MIN ON DAYS 1-2
     Route: 042
     Dates: start: 20190130
  3. DOXORUBICIN [Suspect]
     Active Substance: DOXORUBICIN
     Indication: Hodgkin^s disease
     Dosage: 25 MILLIGRAM/SQ. METER, BOLUS, OVER 1-5 MIN OR BY INTERMITTENT INFUSION OVER 1-15 MIN ON DAYS 1 AND
     Route: 042
     Dates: start: 20190130
  4. ETOPOSIDE [Suspect]
     Active Substance: ETOPOSIDE
     Indication: Hodgkin^s disease
     Dosage: 125 MILLIGRAM/SQ. METER OVER 60-120 MINUTES ON DAYS 1-3
     Route: 042
     Dates: start: 20190130
  5. PREDNISONE [Suspect]
     Active Substance: PREDNISONE
     Indication: Hodgkin^s disease
     Dosage: 20 MILLIGRAM/SQ. METER, BID
     Route: 048
     Dates: start: 20190130
  6. VINCRISTINE SULFATE [Suspect]
     Active Substance: VINCRISTINE SULFATE
     Indication: Hodgkin^s disease
     Dosage: 1.4 MILLIGRAM/SQ. METER, INTRAVENOUS PUSH OVER 1 MIN OR INFUSION ON DAY 8
     Route: 042

REACTIONS (10)
  - Delirium [Unknown]
  - Insomnia [Unknown]
  - Agitation [Unknown]
  - Tearfulness [Unknown]
  - Mental status changes [Unknown]
  - Paranoia [Unknown]
  - Mood swings [Unknown]
  - Confusional state [Unknown]
  - Disorientation [Unknown]
  - Hallucination [Recovered/Resolved]

NARRATIVE: CASE EVENT DATE: 20190424
